FAERS Safety Report 11877952 (Version 1)
Quarter: 2015Q4

REPORT INFORMATION
  Report Type: Other
  Country: GB (occurrence: GB)
  Receive Date: 20151230
  Receipt Date: 20151230
  Transmission Date: 20160305
  Serious: Yes (Other)
  Sender: FDA-Public Use
  Company Number: GB-CIPLA LTD.-2015GB09940

PATIENT

DRUGS (8)
  1. ATORVASTATIN [Concomitant]
     Active Substance: ATORVASTATIN
     Dosage: 1 DF, QD
     Route: 065
     Dates: start: 20141126
  2. CHLORPHENAMINE [Concomitant]
     Active Substance: CHLORPHENIRAMINE MALEATE
     Dosage: 1 DF, EVERY 4-6 HRS
     Route: 065
     Dates: start: 20151201, end: 20151208
  3. VARENICLINE [Concomitant]
     Active Substance: VARENICLINE
     Dosage: 1 DF, BID
     Route: 065
     Dates: start: 20151027, end: 20151124
  4. RAMIPRIL. [Suspect]
     Active Substance: RAMIPRIL
     Dosage: UNK
     Route: 048
     Dates: start: 20141126
  5. GLYCERYL TRINITRATE [Concomitant]
     Active Substance: NITROGLYCERIN
     Dosage: 1 DF, AS NECESSARY 1 PUFF NNDER THE TONGUE FOR CHEST...
     Route: 060
     Dates: start: 20130208
  6. SALBUTAMOL [Concomitant]
     Active Substance: ALBUTEROL
     Dosage: 2 DF, AS NECESSARY
     Route: 055
     Dates: start: 20141016
  7. LOSARTAN. [Concomitant]
     Active Substance: LOSARTAN
     Dosage: 1 DF, QD
     Route: 065
     Dates: start: 20151203
  8. ASPIRIN. [Concomitant]
     Active Substance: ASPIRIN
     Dosage: 1 DF, QD
     Route: 065
     Dates: start: 20141126

REACTIONS (2)
  - Uveitis [Recovered/Resolved]
  - Angioedema [Recovered/Resolved]

NARRATIVE: CASE EVENT DATE: 20151210
